FAERS Safety Report 4453450-1 (Version None)
Quarter: 2004Q3

REPORT INFORMATION
  Report Type: 
  Country: None (occurrence: None)
  Receive Date: 20040920
  Receipt Date: 20040907
  Transmission Date: 20050211
  Serious: Yes (Hospitalization, Other)
  Sender: FDA-Public Use
  Company Number: US-JNJFOC-20040501432

PATIENT
  Sex: Female
  Weight: 48 kg

DRUGS (11)
  1. DURAGESIC [Suspect]
     Route: 062
  2. DURAGESIC [Suspect]
     Route: 062
  3. DURAGESIC [Suspect]
     Route: 062
  4. DURAGESIC [Suspect]
     Route: 062
  5. SERTRALINE HYDROCHLORIDE [Concomitant]
  6. DILAUDID [Concomitant]
  7. PROTONIX [Concomitant]
  8. REGLAN [Concomitant]
  9. ZYPREXA [Concomitant]
  10. COMPAZINE [Concomitant]
  11. DECADRON [Concomitant]
     Dates: end: 20040617

REACTIONS (13)
  - ALOPECIA [None]
  - BALANCE DISORDER [None]
  - CLUBBING [None]
  - FACIAL WASTING [None]
  - FATIGUE [None]
  - MALAISE [None]
  - MALIGNANT NEOPLASM PROGRESSION [None]
  - MOTION SICKNESS [None]
  - MUSCULAR WEAKNESS [None]
  - NAUSEA [None]
  - OPHTHALMOLOGICAL EXAMINATION ABNORMAL [None]
  - VISUAL DISTURBANCE [None]
  - VOMITING [None]
